FAERS Safety Report 8536418 (Version 2)
Quarter: 2013Q2

REPORT INFORMATION
  Report Type: Spontaneous
  Country: US (occurrence: None)
  Receive Date: 20120315
  Receipt Date: 20120703
  Transmission Date: 20140414
  Serious: No
  Sender: FDA-Public Use
  Company Number: PHHY2011US46948

PATIENT
  Age: 57 Year
  Sex: Female
  Weight: 69.9 kg

DRUGS (7)
  1. GILENYA [Suspect]
     Indication: MULTIPLE SCLEROSIS
     Dosage: ?
     Route: 048
     Dates: start: 20110526
  2. XYLENOL (XYLENOL) [Concomitant]
  3. XANAX [Concomitant]
  4. BACLOFEN [Concomitant]
  5. IBUPROFEN (IBUPROFEN) [Concomitant]
  6. ZANAFLEX [Concomitant]
  7. AMBIEN [Concomitant]

REACTIONS (2)
  - ABDOMINAL DISCOMFORT [None]
  - Dyspnoea [None]
